FAERS Safety Report 4340500-6 (Version None)
Quarter: 2004Q2

REPORT INFORMATION
  Report Type: 
  Country: None (occurrence: None)
  Receive Date: 20040414
  Receipt Date: 20040402
  Transmission Date: 20050107
  Serious: Yes (Death, Hospitalization)
  Sender: FDA-Public Use
  Company Number: US-JNJFOC-20040400812

PATIENT
  Age: 78 Year
  Sex: Female

DRUGS (9)
  1. DURAGESIC [Suspect]
     Indication: PAIN
     Dosage: 25 UG/HR, 1 IN 72 HOUR, TRANSDERMAL
     Route: 062
  2. CALAN [Concomitant]
  3. MICROK (POTASSIUM CHLORIDE) [Concomitant]
  4. COUMADIN [Concomitant]
  5. SYNTHROID [Concomitant]
  6. XANAX [Concomitant]
  7. NEXIUM [Concomitant]
  8. HYDRALAZINE HCL TAB [Concomitant]
  9. B-12 (CYANOCOBALAMIN) [Concomitant]

REACTIONS (2)
  - PNEUMONIA [None]
  - RENAL FAILURE ACUTE [None]
